FAERS Safety Report 8015494-2 (Version None)
Quarter: 2011Q4

REPORT INFORMATION
  Report Type: 
  Country: None (occurrence: None)
  Receive Date: 20111227
  Receipt Date: 20111227
  Transmission Date: 20120403
  Serious: Yes (Hospitalization)
  Sender: FDA-Public Use
  Company Number: None

PATIENT
  Sex: Male
  Weight: 69.2 kg

DRUGS (9)
  1. VINCRISTINE SULFATE [Suspect]
     Dosage: 2 MG
  2. OSELTAMIVIR [Concomitant]
  3. DILUADID [Concomitant]
  4. GENTAMICIN [Concomitant]
  5. KYTRIL [Concomitant]
  6. PENTAMIDINE [Concomitant]
  7. METHOTREXATE [Suspect]
     Dosage: 15 MG
  8. CEFEPIME [Concomitant]
  9. PREDNISONE TAB [Suspect]
     Dosage: 350 MG

REACTIONS (15)
  - OXYGEN SATURATION DECREASED [None]
  - METABOLIC ACIDOSIS [None]
  - COUGH [None]
  - BLOOD ELECTROLYTES ABNORMAL [None]
  - INTERNATIONAL NORMALISED RATIO INCREASED [None]
  - HAEMORRHAGE [None]
  - HEPATIC FAILURE [None]
  - GENERAL PHYSICAL HEALTH DETERIORATION [None]
  - LUNG INFILTRATION [None]
  - COAGULOPATHY [None]
  - PYREXIA [None]
  - MALAISE [None]
  - PANCYTOPENIA [None]
  - BLOOD GLUCOSE INCREASED [None]
  - TACHYCARDIA [None]
